FAERS Safety Report 4465916-9 (Version None)
Quarter: 2004Q3

REPORT INFORMATION
  Report Type: 
  Country: None (occurrence: None)
  Receive Date: 20040930
  Receipt Date: 20040915
  Transmission Date: 20050211
  Serious: No
  Sender: FDA-Public Use
  Company Number: 2004AP04867

PATIENT
  Age: 82 Year
  Sex: Male

DRUGS (1)
  1. MARCAINE [Suspect]
     Indication: ANAESTHESIA
     Dates: start: 20010925, end: 20010925

REACTIONS (7)
  - ANAESTHETIC COMPLICATION [None]
  - CRANIAL NERVE INJURY [None]
  - DIPLOPIA [None]
  - ISCHAEMIA [None]
  - MUSCLE INJURY [None]
  - PROCEDURAL COMPLICATION [None]
  - STRABISMUS [None]
